FAERS Safety Report 18998479 (Version 1)
Quarter: 2021Q1

REPORT INFORMATION
  Report Type: Spontaneous
  Country: US (occurrence: US)
  Receive Date: 20210312
  Receipt Date: 20210312
  Transmission Date: 20210420
  Serious: No
  Sender: FDA-Public Use
  Company Number: US-JNJFOC-20210310686

PATIENT
  Sex: Female

DRUGS (2)
  1. ZYRTEC [Suspect]
     Active Substance: CETIRIZINE HYDROCHLORIDE
     Indication: RHINORRHOEA
     Dosage: ONCE DAILY ON FIRST TWO DAYS. TWICE IN THIRD DAY.
     Route: 048
     Dates: start: 20210228
  2. ZYRTEC [Suspect]
     Active Substance: CETIRIZINE HYDROCHLORIDE
     Indication: PRURITUS
     Dosage: LAST ADMIN DATE: 02?MAR?2021
     Route: 048
     Dates: start: 20210302

REACTIONS (2)
  - Drug ineffective [Unknown]
  - Overdose [Unknown]

NARRATIVE: CASE EVENT DATE: 20210228
